FAERS Safety Report 9807377 (Version 1)
Quarter: 2014Q1

REPORT INFORMATION
  Report Type: Report from Study
  Country: US (occurrence: US)
  Receive Date: 20140110
  Receipt Date: 20140110
  Transmission Date: 20141002
  Serious: Yes (Death, Other)
  Sender: FDA-Public Use
  Company Number: US-US-EMD SERONO, INC.-7261384

PATIENT
  Sex: Female

DRUGS (1)
  1. REBIF [Suspect]
     Indication: MULTIPLE SCLEROSIS
     Route: 058
     Dates: start: 20030103, end: 201102

REACTIONS (7)
  - Thrombotic thrombocytopenic purpura [Fatal]
  - Pneumonia [Unknown]
  - Infection [Unknown]
  - Renal failure [Fatal]
  - Gallbladder disorder [Unknown]
  - Spleen disorder [Unknown]
  - Pancreatic disorder [Unknown]
